FAERS Safety Report 6613388-8 (Version None)
Quarter: 2010Q1

REPORT INFORMATION
  Report Type: 
  Country: None (occurrence: None)
  Receive Date: 20100304
  Receipt Date: 20100219
  Transmission Date: 20100710
  Serious: Yes (Other)
  Sender: FDA-Public Use
  Company Number: PHEH2008US07466

PATIENT
  Sex: Female

DRUGS (18)
  1. ZOMETA [Suspect]
     Dosage: 1 MG, UNK
     Dates: end: 20071001
  2. THALIDOMIDE [Concomitant]
     Dosage: 100 MG
  3. DEXAMETHASONE [Concomitant]
     Dosage: 4 MG
  4. VELCADE [Concomitant]
  5. ANZEMET [Concomitant]
  6. ZOVIRAX [Concomitant]
     Dosage: UNK
  7. SULFAMETHOXAZOLE [Concomitant]
  8. NYSTATIN [Concomitant]
  9. BACTRIM [Concomitant]
  10. COLACE [Concomitant]
  11. ZOFRAN [Concomitant]
  12. TORECAN [Concomitant]
  13. TYLENOL-500 [Concomitant]
  14. CLINDAMYCIN [Concomitant]
     Dosage: 300 MG
  15. CEPHALEXIN [Concomitant]
     Dosage: 500 MG
  16. LYRICA [Concomitant]
     Dosage: 50 MG
  17. ACULAR ^ALLERGAN^ [Concomitant]
     Dosage: UNK
  18. FLUTAMIDE [Concomitant]

REACTIONS (11)
  - ANXIETY [None]
  - BONE DISORDER [None]
  - DENTAL CARIES [None]
  - GENERAL PHYSICAL HEALTH DETERIORATION [None]
  - LYMPHADENOPATHY [None]
  - MUSCULOSKELETAL DISCOMFORT [None]
  - OSTEONECROSIS [None]
  - PAIN [None]
  - PHARYNGITIS [None]
  - SWELLING [None]
  - VOMITING [None]
